FAERS Safety Report 7258728-4 (Version None)
Quarter: 2011Q1

REPORT INFORMATION
  Report Type: 
  Country: None (occurrence: None)
  Receive Date: 20110129
  Receipt Date: 20100513
  Transmission Date: 20110831
  Serious: No
  Sender: FDA-Public Use
  Company Number: US-ABBOTT-10P-163-0645537-00

PATIENT
  Sex: Female

DRUGS (12)
  1. CYMBALTA [Concomitant]
     Indication: DEPRESSION
  2. LISINOPRIL [Concomitant]
     Indication: HYPERTENSION
     Route: 048
     Dates: start: 20080101
  3. PROTONIX [Concomitant]
     Indication: PRODUCT USED FOR UNKNOWN INDICATION
     Route: 048
     Dates: start: 20040101
  4. MAXZIDE [Concomitant]
     Indication: HYPERTENSION
     Route: 048
  5. CYMBALTA [Concomitant]
     Indication: ANXIETY
  6. HUMIRA [Suspect]
     Indication: RHEUMATOID ARTHRITIS
     Route: 058
     Dates: start: 20100301
  7. CYMBALTA [Concomitant]
     Indication: PAIN
     Route: 048
     Dates: start: 20090101
  8. MEDROL [Concomitant]
     Indication: PRODUCT USED FOR UNKNOWN INDICATION
     Route: 048
     Dates: end: 20100401
  9. MEDROL [Concomitant]
     Dosage: UNKNOWN INCREASED DOSE
     Route: 048
     Dates: start: 20100401
  10. DICLOFENAC [Concomitant]
     Indication: RHEUMATOID ARTHRITIS
     Route: 048
     Dates: end: 20100501
  11. PLAQUENIL [Concomitant]
     Indication: PRODUCT USED FOR UNKNOWN INDICATION
     Route: 048
     Dates: start: 20081001
  12. SYNTHROID [Concomitant]
     Indication: PRODUCT USED FOR UNKNOWN INDICATION
     Route: 048

REACTIONS (4)
  - INCREASED TENDENCY TO BRUISE [None]
  - JOINT SWELLING [None]
  - BLOOD CREATININE INCREASED [None]
  - MYALGIA [None]
